FAERS Safety Report 7066666-5 (Version None)
Quarter: 2010Q4

REPORT INFORMATION
  Report Type: 
  Country: None (occurrence: None)
  Receive Date: 20101027
  Receipt Date: 20101004
  Transmission Date: 20110411
  Serious: No
  Sender: FDA-Public Use
  Company Number: US-WYE-H16977710

PATIENT
  Sex: Female
  Weight: 67.65 kg

DRUGS (10)
  1. PREMPRO [Suspect]
     Indication: PRODUCT USED FOR UNKNOWN INDICATION
     Dosage: UNKNOWN
     Route: 065
     Dates: start: 19820101, end: 20070101
  2. PREMPRO [Suspect]
     Dosage: TAPERED
     Route: 065
     Dates: start: 20070101
  3. PREMPRO [Suspect]
     Dosage: RESUMED DAILY
     Route: 065
     Dates: end: 20100101
  4. PREMPRO [Suspect]
     Dosage: RESUMED DAILY
     Route: 065
     Dates: start: 20100101
  5. SYNTHROID [Concomitant]
  6. AMLODIPINE [Concomitant]
  7. POTASSIUM CHLORIDE [Concomitant]
  8. ASCORBIC ACID/ERGOCALCIFEROL/FOLIC ACID/NICOTINAMIDE/PANTHENOL/RETINOL [Concomitant]
  9. LIPITOR [Suspect]
     Indication: BLOOD CHOLESTEROL INCREASED
     Route: 065
  10. DYAZIDE [Concomitant]

REACTIONS (6)
  - FATIGUE [None]
  - IRRITABILITY [None]
  - MOOD ALTERED [None]
  - MUSCULAR WEAKNESS [None]
  - MYALGIA [None]
  - WITHDRAWAL SYNDROME [None]
